FAERS Safety Report 6440075-1 (Version None)
Quarter: 2009Q4

REPORT INFORMATION
  Report Type: 
  Country: None (occurrence: None)
  Receive Date: 20091113
  Receipt Date: 20091105
  Transmission Date: 20100525
  Serious: Yes (Hospitalization, Other)
  Sender: FDA-Public Use
  Company Number: FR-ASTRAZENECA-2009SE24743

PATIENT
  Age: 78 Year
  Sex: Female

DRUGS (5)
  1. HYTACAND [Suspect]
     Route: 048
     Dates: end: 20090721
  2. FUROSEMIDE [Suspect]
     Indication: HYPERTENSION
     Route: 048
     Dates: end: 20090721
  3. PREVISCAN [Concomitant]
     Dosage: 5 DAYS/7 DAYS
  4. ALDACTONE [Concomitant]
     Route: 065
  5. CORDARONE [Concomitant]
     Route: 065

REACTIONS (3)
  - HYPONATRAEMIA [None]
  - LOSS OF CONSCIOUSNESS [None]
  - MALAISE [None]
